FAERS Safety Report 20468455 (Version 1)
Quarter: 2022Q1

REPORT INFORMATION
  Report Type: Spontaneous
  Country: US (occurrence: None)
  Receive Date: 20220211
  Receipt Date: 20220211
  Transmission Date: 20220423
  Serious: No
  Sender: FDA-Public Use
  Company Number: None

PATIENT
  Sex: Female

DRUGS (1)
  1. TRAVOPROST [Suspect]
     Active Substance: TRAVOPROST
     Dosage: FREQUENCY : DAILY;?
     Route: 047
     Dates: start: 20210129, end: 20210131

REACTIONS (3)
  - Eye pain [None]
  - Eye irritation [None]
  - Therapy cessation [None]

NARRATIVE: CASE EVENT DATE: 20210131
